FAERS Safety Report 8924458 (Version 1)
Quarter: 2012Q4

REPORT INFORMATION
  Report Type: 
  Country: US (occurrence: US)
  Receive Date: 20121126
  Receipt Date: 20121126
  Transmission Date: 20130627
  Serious: Yes (Hospitalization, Other)
  Sender: FDA-Public Use
  Company Number: US-TEVA-364436USA

PATIENT
  Age: 42 Year
  Sex: Male

DRUGS (1)
  1. CLOZAPINE [Suspect]

REACTIONS (7)
  - Neuroleptic malignant syndrome [Recovered/Resolved]
  - Respiratory failure [Recovered/Resolved]
  - Schizoaffective disorder [Recovered/Resolved]
  - Bipolar disorder [Recovered/Resolved]
  - Rhabdomyolysis [Recovered/Resolved]
  - Seborrhoeic dermatitis [Unknown]
  - Euthyroid sick syndrome [Recovered/Resolved]
